FAERS Safety Report 8510276-7 (Version None)
Quarter: 2012Q3

REPORT INFORMATION
  Report Type: 
  Country: None (occurrence: None)
  Receive Date: 20120713
  Receipt Date: 20120705
  Transmission Date: 20120928
  Serious: Yes (Hospitalization, Other)
  Sender: FDA-Public Use
  Company Number: US-BAXTER-2012BAX010377

PATIENT
  Sex: Female

DRUGS (1)
  1. DIANEAL [Suspect]
     Indication: PERITONEAL DIALYSIS
     Route: 033
     Dates: start: 20100927, end: 20120629

REACTIONS (6)
  - PERITONITIS BACTERIAL [None]
  - MUSCULOSKELETAL PAIN [None]
  - DIARRHOEA [None]
  - FALL [None]
  - PERITONEAL EFFLUENT ABNORMAL [None]
  - HIP FRACTURE [None]
